FAERS Safety Report 5255535-9 (Version None)
Quarter: 2007Q1

REPORT INFORMATION
  Report Type: 
  Country: None (occurrence: None)
  Receive Date: 20070305
  Receipt Date: 20070221
  Transmission Date: 20070707
  Serious: Yes (Other)
  Sender: FDA-Public Use
  Company Number: HQWYE668323FEB07

PATIENT
  Sex: Female

DRUGS (2)
  1. HYPEN [Suspect]
     Indication: BACK PAIN
     Route: 048
     Dates: start: 20070108, end: 20070108
  2. NONE [Concomitant]

REACTIONS (6)
  - DERMATITIS EXFOLIATIVE [None]
  - ERYTHEMA [None]
  - GLOSSITIS [None]
  - ORAL MUCOSAL EXFOLIATION [None]
  - RASH GENERALISED [None]
  - SKIN EROSION [None]
